FAERS Safety Report 9285870 (Version 3)
Quarter: 2014Q3

REPORT INFORMATION
  Report Type: Spontaneous
  Country: US (occurrence: US)
  Receive Date: 20130513
  Receipt Date: 20140813
  Transmission Date: 20150326
  Serious: Yes (Death, Hospitalization, Disabling)
  Sender: FDA-Public Use
  Company Number: US-BAYER-2013-057057

PATIENT
  Age: 48 Year
  Sex: Female

DRUGS (5)
  1. YASMIN [Suspect]
     Active Substance: DROSPIRENONE\ETHINYL ESTRADIOL
     Dosage: UNK
     Dates: start: 200902, end: 20120727
  2. GIANVI [Suspect]
     Active Substance: DROSPIRENONE\ETHINYL ESTRADIOL
     Dosage: UNK
     Dates: start: 200902, end: 20120727
  3. NEXIUM [Concomitant]
     Active Substance: ESOMEPRAZOLE MAGNESIUM
  4. YAZ [Suspect]
     Active Substance: DROSPIRENONE\ETHINYL ESTRADIOL
     Dosage: UNK
     Dates: start: 200902, end: 20120727
  5. OCELLA [Suspect]
     Active Substance: DROSPIRENONE\ETHINYL ESTRADIOL
     Dosage: UNK
     Dates: start: 200902, end: 20120727

REACTIONS (8)
  - Deformity [None]
  - Anxiety [None]
  - Acute myocardial infarction [Fatal]
  - Injury [Fatal]
  - Pulmonary embolism [Fatal]
  - Pain [Fatal]
  - Cerebrovascular accident [Fatal]
  - Anhedonia [None]

NARRATIVE: CASE EVENT DATE: 20120725
